FAERS Safety Report 5020897-4 (Version None)
Quarter: 2006Q2

REPORT INFORMATION
  Report Type: 
  Country: None (occurrence: None)
  Receive Date: 20060606
  Receipt Date: 20060606
  Transmission Date: 20061013
  Serious: Yes (Life-Threatening, Hospitalization)
  Sender: FDA-Public Use
  Company Number: None

PATIENT
  Sex: Male
  Weight: 104 kg

DRUGS (2)
  1. ZOCOR [Suspect]
     Indication: HYPERLIPIDAEMIA
     Dosage: 40 MG ONCE DAILY ORAL
     Route: 048
     Dates: start: 20060405, end: 20060503
  2. LOPID [Suspect]
     Indication: HYPERLIPIDAEMIA
     Dosage: 600 MG TWICE DAILY ORAL
     Route: 048
     Dates: start: 20050825, end: 20060503

REACTIONS (3)
  - ALANINE AMINOTRANSFERASE INCREASED [None]
  - ASPARTATE AMINOTRANSFERASE INCREASED [None]
  - RHABDOMYOLYSIS [None]
